FAERS Safety Report 7101128-8 (Version None)
Quarter: 2010Q4

REPORT INFORMATION
  Report Type: 
  Country: None (occurrence: None)
  Receive Date: 20101113
  Receipt Date: 20100427
  Transmission Date: 20110411
  Serious: No
  Sender: FDA-Public Use
  Company Number: US-ALLERGAN-1005557US

PATIENT
  Age: 42 Year
  Sex: Male

DRUGS (1)
  1. BOTOXA? [Suspect]
     Indication: HYPERHIDROSIS
     Dosage: 100 UNITS, SINGLE
     Dates: start: 20100422, end: 20100422

REACTIONS (2)
  - LYMPHADENOPATHY [None]
  - WRONG TECHNIQUE IN DRUG USAGE PROCESS [None]
